FAERS Safety Report 24829371 (Version 1)
Quarter: 2025Q1

REPORT INFORMATION
  Report Type: Spontaneous
  Country: KR (occurrence: KR)
  Receive Date: 20250110
  Receipt Date: 20250110
  Transmission Date: 20250409
  Serious: Yes (Hospitalization, Other)
  Sender: ORGANON
  Company Number: KR-ORGANON-O2501KOR000561

PATIENT
  Age: 65 Year
  Sex: Male

DRUGS (2)
  1. ATORVASTATIN CALCIUM\EZETIMIBE [Suspect]
     Active Substance: ATORVASTATIN CALCIUM\EZETIMIBE
     Indication: Type IIa hyperlipidaemia
     Route: 048
     Dates: start: 20200428, end: 20200506
  2. TRIMETAZIDINE DIHYDROCHLORIDE [Concomitant]
     Active Substance: TRIMETAZIDINE DIHYDROCHLORIDE
     Indication: Arteriosclerosis
     Dosage: 20 MILLIGRAM, Q12H
     Route: 048
     Dates: start: 20200428

REACTIONS (1)
  - Angina pectoris [Recovered/Resolved with Sequelae]
